FAERS Safety Report 9802148 (Version 1)
Quarter: 2014Q1

REPORT INFORMATION
  Report Type: Spontaneous
  Country: US (occurrence: US)
  Receive Date: 20140107
  Receipt Date: 20140107
  Transmission Date: 20141002
  Serious: No
  Sender: FDA-Public Use
  Company Number: US-009507513-1312USA007634

PATIENT
  Age: 17 Year
  Sex: Female
  Weight: 118.37 kg

DRUGS (1)
  1. NEXPLANON [Suspect]
     Indication: CONTRACEPTION
     Dosage: 1 ROD, UNK
     Route: 059
     Dates: start: 20131112, end: 20131216

REACTIONS (4)
  - Device expulsion [Recovering/Resolving]
  - Implant site pain [Recovering/Resolving]
  - Implant site erythema [Recovering/Resolving]
  - Pyrexia [Recovering/Resolving]
